FAERS Safety Report 18577040 (Version 2)
Quarter: 2021Q1

REPORT INFORMATION
  Report Type: Report from Study
  Country: GB (occurrence: GB)
  Receive Date: 20201203
  Receipt Date: 20210112
  Transmission Date: 20210419
  Serious: Yes (Hospitalization)
  Sender: FDA-Public Use
  Company Number: GB-EISAI MEDICAL RESEARCH-EC-2020-080623

PATIENT
  Age: 14 Year
  Sex: Female
  Weight: 25.9 kg

DRUGS (3)
  1. LOPERAMIDE [Concomitant]
     Active Substance: LOPERAMIDE
     Indication: DIARRHOEA
     Dates: start: 20201120
  2. IRINOTECAN [Suspect]
     Active Substance: IRINOTECAN
     Indication: RHABDOMYOSARCOMA
     Route: 041
     Dates: start: 20200706
  3. ERIBULIN [Suspect]
     Active Substance: ERIBULIN
     Indication: RHABDOMYOSARCOMA
     Route: 041
     Dates: start: 20200706

REACTIONS (3)
  - Pyrexia [Recovered/Resolved]
  - Upper respiratory tract infection [Recovered/Resolved]
  - C-reactive protein increased [Recovered/Resolved]

NARRATIVE: CASE EVENT DATE: 20200914
